FAERS Safety Report 9805717 (Version 1)
Quarter: 2014Q1

REPORT INFORMATION
  Report Type: Spontaneous
  Country: US (occurrence: US)
  Receive Date: 20140109
  Receipt Date: 20140109
  Transmission Date: 20141002
  Serious: No
  Sender: FDA-Public Use
  Company Number: US-BAYER-2014-003169

PATIENT
  Age: 80 Year
  Sex: Female
  Weight: 77 kg

DRUGS (12)
  1. ALEVE CAPLET [Suspect]
     Indication: BACK PAIN
     Dosage: 1 DF, BID
     Route: 048
     Dates: start: 2012
  2. NEXIUM [Concomitant]
  3. SYSTANE [Concomitant]
  4. ICAPS [Concomitant]
  5. CITALOPRAM [Concomitant]
  6. ADVAIR [Concomitant]
  7. MONTELUKAST [Concomitant]
  8. TRIAMCINOLONE [Concomitant]
  9. ASPIRIN [Concomitant]
  10. VITAMIN D [Concomitant]
  11. CALTRATE [CALCIUM CARBONATE] [Concomitant]
  12. OMEPRAZOLE [Concomitant]

REACTIONS (1)
  - Incorrect drug administration duration [None]
